FAERS Safety Report 7957024-7 (Version None)
Quarter: 2011Q4

REPORT INFORMATION
  Report Type: 
  Country: None (occurrence: None)
  Receive Date: 20111205
  Receipt Date: 20111205
  Transmission Date: 20120403
  Serious: Yes (Other)
  Sender: FDA-Public Use
  Company Number: None

PATIENT
  Age: 59 Year
  Sex: Female
  Weight: 65.77 kg

DRUGS (1)
  1. PROPRANOLOL [Suspect]
     Indication: PALPITATIONS
     Dosage: 1 TAB
     Route: 048
     Dates: start: 20110504, end: 20110824

REACTIONS (4)
  - PALPITATIONS [None]
  - PRESYNCOPE [None]
  - DYSPNOEA [None]
  - PRODUCT SUBSTITUTION ISSUE [None]
